FAERS Safety Report 5173433-6 (Version None)
Quarter: 2006Q4

REPORT INFORMATION
  Report Type: 
  Country: None (occurrence: None)
  Receive Date: 20061208
  Receipt Date: 20061208
  Transmission Date: 20070319
  Serious: Yes (Hospitalization)
  Sender: FDA-Public Use
  Company Number: None

PATIENT
  Sex: Female
  Weight: 24.2674 kg

DRUGS (11)
  1. CETUXIMAB 250 MG/M2 BRISTOL MEYERS SQUIBB [Suspect]
     Indication: CERVIX CARCINOMA
     Dosage: 405 WEEKLY IV
     Route: 042
     Dates: start: 20060914
  2. CETUXIMAB 250 MG/M2 BRISTOL MEYERS SQUIBB [Suspect]
     Indication: CERVIX CARCINOMA
     Dosage: 405 WEEKLY IV
     Route: 042
     Dates: start: 20060921
  3. CETUXIMAB 250 MG/M2 BRISTOL MEYERS SQUIBB [Suspect]
     Indication: CERVIX CARCINOMA
     Dosage: 390 WEEKLY IV
     Route: 042
     Dates: start: 20061003
  4. CETUXIMAB 250 MG/M2 BRISTOL MEYERS SQUIBB [Suspect]
     Indication: CERVIX CARCINOMA
     Dosage: 390 WEEKLY IV
     Route: 042
     Dates: start: 20061013
  5. CETUXIMAB 250 MG/M2 BRISTOL MEYERS SQUIBB [Suspect]
     Indication: CERVIX CARCINOMA
     Dosage: 390 WEEKLY IV
     Route: 042
     Dates: start: 20061019
  6. LISINOPRIL AND HYDROCHLOROTHIAZIDE [Concomitant]
  7. OXYCODONE + ACETAMINOPHEN [Concomitant]
  8. FAMOTIDINE [Concomitant]
  9. POTASSIUM CHLORIDE [Concomitant]
  10. APREPITANT [Concomitant]
  11. DEXAMETHASONE [Concomitant]

REACTIONS (2)
  - FLUID REPLACEMENT [None]
  - TRANSFUSION [None]
